FAERS Safety Report 4593060-9 (Version None)
Quarter: 2005Q1

REPORT INFORMATION
  Report Type: 
  Country: None (occurrence: None)
  Receive Date: 20050301
  Receipt Date: 20050217
  Transmission Date: 20050727
  Serious: Yes (Hospitalization)
  Sender: FDA-Public Use
  Company Number: JP-JNJFOC-20040201527

PATIENT
  Sex: Male
  Weight: 55 kg

DRUGS (24)
  1. REMICADE [Suspect]
     Route: 041
     Dates: start: 20030621
  2. REMICADE [Suspect]
     Route: 041
     Dates: start: 20030621
  3. REMICADE [Suspect]
     Route: 041
     Dates: start: 20030621
  4. REMICADE [Suspect]
     Route: 041
     Dates: start: 20030621
  5. REMICADE [Suspect]
     Indication: FISTULA
     Route: 041
     Dates: start: 20030621
  6. REMICADE [Suspect]
     Indication: CROHN'S DISEASE
     Route: 041
     Dates: start: 20030621
  7. FLAGYL [Suspect]
     Indication: DRUG USE FOR UNKNOWN INDICATION
     Route: 049
  8. PREDONINE [Concomitant]
     Route: 049
  9. PENTASA [Concomitant]
     Indication: CROHN'S DISEASE
     Dosage: DOSE/DAY REPORTED AS ^12 T^
     Route: 049
  10. GASTER D [Concomitant]
     Route: 049
  11. HALCION [Concomitant]
     Route: 049
  12. MOBIC [Concomitant]
     Route: 049
  13. ENTERAL NUTRITION [Concomitant]
  14. AZANIN [Concomitant]
  15. BIOFERMIN [Concomitant]
     Route: 049
  16. BIOFERMIN [Concomitant]
     Route: 049
  17. BIOFERMIN [Concomitant]
     Route: 049
  18. ELENTAL [Concomitant]
     Route: 049
  19. ELENTAL [Concomitant]
     Route: 049
  20. RABEPRAZOLE SODIUM [Concomitant]
     Route: 049
  21. MYSLEE [Concomitant]
  22. DIFLUCAN [Concomitant]
  23. POLARAMINE [Concomitant]
  24. LOXONIN [Concomitant]

REACTIONS (8)
  - ALANINE AMINOTRANSFERASE INCREASED [None]
  - ASPARTATE AMINOTRANSFERASE INCREASED [None]
  - BLOOD ALKALINE PHOSPHATASE INCREASED [None]
  - CANDIDA PNEUMONIA [None]
  - DIZZINESS [None]
  - GAMMA-GLUTAMYLTRANSFERASE INCREASED [None]
  - HEADACHE [None]
  - INTESTINAL OBSTRUCTION [None]
